FAERS Safety Report 23178750 (Version 1)
Quarter: 2023Q4

REPORT INFORMATION
  Report Type: Spontaneous
  Country: CA (occurrence: CA)
  Receive Date: 20231113
  Receipt Date: 20231113
  Transmission Date: 20240110
  Serious: Yes (Other)
  Sender: FDA-Public Use
  Company Number: CA-OTSUKA-2023_028974

PATIENT
  Sex: Female

DRUGS (2)
  1. REXULTI [Suspect]
     Active Substance: BREXPIPRAZOLE
     Indication: Major depression
     Dosage: UNK
     Route: 065
     Dates: end: 202204
  2. REXULTI [Suspect]
     Active Substance: BREXPIPRAZOLE
     Indication: Epilepsy

REACTIONS (8)
  - Cerebrovascular accident [Unknown]
  - Parkinson^s disease [Unknown]
  - Loss of personal independence in daily activities [Recovered/Resolved]
  - Gait disturbance [Unknown]
  - Fall [Recovered/Resolved]
  - Musculoskeletal stiffness [Recovered/Resolved]
  - Vision blurred [Recovered/Resolved]
  - Product use in unapproved indication [Unknown]
